FAERS Safety Report 10780551 (Version 1)
Quarter: 2015Q1

REPORT INFORMATION
  Report Type: Spontaneous
  Country: US (occurrence: None)
  Receive Date: 20150206
  Receipt Date: 20150206
  Transmission Date: 20150721
  Serious: Yes (Hospitalization)
  Sender: FDA-Public Use
  Company Number: None

PATIENT
  Age: 77 Year
  Sex: Female
  Weight: 73.5 kg

DRUGS (1)
  1. GADOBENATE DIMEGLUMINE 529 MG/ML BRACCO DIAGNOSTICS [Suspect]
     Active Substance: GADOBENATE DIMEGLUMINE
     Indication: SCAN WITH CONTRAST
     Route: 042
     Dates: start: 20141006, end: 20141006

REACTIONS (8)
  - Palpitations [None]
  - Heart rate increased [None]
  - Erythema [None]
  - Similar reaction on previous exposure to drug [None]
  - Blood lactic acid increased [None]
  - Burning sensation [None]
  - Contrast media reaction [None]
  - Oxygen saturation decreased [None]

NARRATIVE: CASE EVENT DATE: 20141006
